FAERS Safety Report 18324111 (Version 1)
Quarter: 2020Q3

REPORT INFORMATION
  Report Type: Spontaneous
  Country: CZ (occurrence: CZ)
  Receive Date: 20200928
  Receipt Date: 20200928
  Transmission Date: 20201103
  Serious: Yes (Hospitalization)
  Sender: FDA-Public Use
  Company Number: CZ-ANIPHARMA-2020-CZ-000015

PATIENT
  Age: 79 Year
  Sex: Female

DRUGS (3)
  1. PERINDOPRIL [Concomitant]
     Active Substance: PERINDOPRIL
  2. INDAPAMIDE. [Concomitant]
     Active Substance: INDAPAMIDE
  3. CEFUROXIME AXETIL (NON?SPECIFIC) [Suspect]
     Active Substance: CEFUROXIME AXETIL
     Indication: RESPIRATORY TRACT INFECTION VIRAL
     Dosage: 500 MG TWICE DAILY
     Route: 048

REACTIONS (1)
  - Pancreatitis [Recovered/Resolved]
